FAERS Safety Report 9483637 (Version 1)
Quarter: 2013Q3

REPORT INFORMATION
  Report Type: Spontaneous
  Country: US (occurrence: US)
  Receive Date: 20130828
  Receipt Date: 20130828
  Transmission Date: 20140515
  Serious: Yes (Death, Hospitalization)
  Sender: FDA-Public Use
  Company Number: US-AMGEN-KDL299230

PATIENT
  Age: 73 Year
  Sex: Male

DRUGS (1)
  1. PROCRIT [Suspect]
     Indication: PRODUCT USED FOR UNKNOWN INDICATION
     Dosage: 10000 IU, Q2WK
     Route: 065
     Dates: end: 20080719

REACTIONS (3)
  - Death [Fatal]
  - Renal failure [Unknown]
  - Pneumonia [Unknown]
